FAERS Safety Report 10641208 (Version 6)
Quarter: 2015Q2

REPORT INFORMATION
  Report Type: Spontaneous
  Country: US (occurrence: US)
  Receive Date: 20141209
  Receipt Date: 20150609
  Transmission Date: 20150821
  Serious: Yes (Hospitalization, Other)
  Sender: FDA-Public Use
  Company Number: US-GLAXOSMITHKLINE-US2014GSK032758

PATIENT
  Age: 64 Year
  Sex: Male

DRUGS (5)
  1. FLOLAN [Suspect]
     Active Substance: EPOPROSTENOL SODIUM
     Indication: PULMONARY HYPERTENSION
     Dosage: 5 NG/KG/MIN, CO
  2. FLOLAN [Suspect]
     Active Substance: EPOPROSTENOL SODIUM
     Indication: COR PULMONALE CHRONIC
     Dosage: 3 NG/KG/MIN, CO
     Dates: start: 20141117
  3. FLOLAN [Suspect]
     Active Substance: EPOPROSTENOL SODIUM
     Dosage: 4 NG/KG/MIN CONTINUOUS; CONCENTRATION: 10,000 NG/ML; PUMP RATE: 64 ML/DAY; VIAL STRENGTH: 0.5 MG
     Dates: start: 20141117
  4. FLOLAN [Suspect]
     Active Substance: EPOPROSTENOL SODIUM
     Dosage: 4 NG/KG/MIN CONTINUOUS; CONCENTRATION: 10,000 NG/ML; PUMP RATE: 64 ML/DAY; VIAL STRENGTH: 0.5 MG
     Dates: start: 20141114
  5. WARFARIN [Concomitant]
     Active Substance: WARFARIN

REACTIONS (3)
  - Hospitalisation [Unknown]
  - International normalised ratio increased [Unknown]
  - Fluid retention [Unknown]

NARRATIVE: CASE EVENT DATE: 20141215
